FAERS Safety Report 4436240-5 (Version None)
Quarter: 2004Q3

REPORT INFORMATION
  Report Type: 
  Country: None (occurrence: None)
  Receive Date: 20040830
  Receipt Date: 20040608
  Transmission Date: 20050211
  Serious: Yes (Hospitalization, Other)
  Sender: FDA-Public Use
  Company Number: US-BRISTOL-MYERS SQUIBB COMPANY-12608006

PATIENT
  Age: 58 Year
  Sex: Male
  Weight: 68 kg

DRUGS (11)
  1. ERBITUX [Suspect]
     Indication: COLORECTAL CANCER METASTATIC
     Dosage: TREATMENT HELD ON 04-JUN-2004 AND THEN DISCONTINUED.
     Route: 042
     Dates: start: 20040527, end: 20040527
  2. ANZEMET [Concomitant]
     Indication: PREMEDICATION
     Route: 042
     Dates: start: 20040527, end: 20040527
  3. BENADRYL [Concomitant]
     Indication: PREMEDICATION
     Route: 042
     Dates: start: 20040527, end: 20040527
  4. DECADRON [Concomitant]
     Indication: PREMEDICATION
     Route: 042
     Dates: start: 20040527, end: 20040527
  5. ZANTAC [Concomitant]
     Indication: PREMEDICATION
     Route: 042
     Dates: start: 20040527, end: 20040527
  6. ATROPINE [Concomitant]
     Route: 042
     Dates: start: 20040527, end: 20040527
  7. CPT-11 [Concomitant]
     Route: 042
     Dates: start: 20040527, end: 20040527
  8. FLUOROURACIL [Concomitant]
     Route: 042
     Dates: start: 20040527, end: 20040527
  9. CELEBREX [Concomitant]
  10. MARINOL [Concomitant]
  11. PERCOCET [Concomitant]

REACTIONS (4)
  - ANOREXIA [None]
  - FATIGUE [None]
  - PNEUMONITIS [None]
  - WEIGHT DECREASED [None]
